FAERS Safety Report 24062625 (Version 6)
Quarter: 2024Q3

REPORT INFORMATION
  Report Type: Report from Study
  Country: US (occurrence: US)
  Receive Date: 20240708
  Receipt Date: 20240908
  Transmission Date: 20241017
  Serious: No
  Sender: ALEXION PHARMACEUTICALS
  Company Number: US-AstraZeneca-CH-00657827A

PATIENT
  Sex: Female
  Weight: 59.864 kg

DRUGS (2)
  1. STRENSIQ [Suspect]
     Active Substance: ASFOTASE ALFA
     Indication: Hypophosphatasia
     Dosage: 80 MILLILITER, TIW
     Route: 065
  2. STRENSIQ [Suspect]
     Active Substance: ASFOTASE ALFA
     Dosage: 20 MILLILITER, TIW
     Route: 065

REACTIONS (10)
  - Fibromyalgia [Unknown]
  - Pain [Unknown]
  - Injection site discolouration [Recovered/Resolved]
  - Depressed mood [Unknown]
  - Malaise [Unknown]
  - Injection site pain [Unknown]
  - Varicose vein [Unknown]
  - Injection site scar [Unknown]
  - Injection site swelling [Unknown]
  - Injection site erythema [Unknown]
